FAERS Safety Report 23649613 (Version 1)
Quarter: 2024Q1

REPORT INFORMATION
  Report Type: Report from Study
  Country: US (occurrence: None)
  Receive Date: 20240319
  Receipt Date: 20240319
  Transmission Date: 20240410
  Serious: Yes (Other)
  Sender: FDA-Public Use
  Company Number: 2024A061322

PATIENT
  Age: 84 Year
  Sex: Male
  Weight: 81.6 kg

DRUGS (4)
  1. FASENRA [Suspect]
     Active Substance: BENRALIZUMAB
     Indication: Asthma
     Dosage: INJECT 30 MG (1 PEN) UNDER THE SKIN AT WEEK 8, THEN EVERY 8 WEEKS THEREAFTER 30.0MG UNKNOWN
     Route: 058
     Dates: start: 20230227
  2. ELIQUIS [Concomitant]
     Active Substance: APIXABAN
  3. ASPIRIN [Concomitant]
     Active Substance: ASPIRIN
  4. CLOPIDOGREL [Concomitant]
     Active Substance: CLOPIDOGREL BISULFATE

REACTIONS (1)
  - Cerebrovascular accident [Unknown]

NARRATIVE: CASE EVENT DATE: 20230330
